FAERS Safety Report 9682778 (Version 1)
Quarter: 2013Q4

REPORT INFORMATION
  Report Type: Spontaneous
  Country: US (occurrence: US)
  Receive Date: 20131112
  Receipt Date: 20131112
  Transmission Date: 20140711
  Serious: Yes (Hospitalization, Other)
  Sender: FDA-Public Use
  Company Number: PHEH2013US023552

PATIENT
  Sex: Male

DRUGS (4)
  1. VALSARTAN [Suspect]
  2. AMLODIPINE [Suspect]
     Dosage: UNK
  3. BYSTOLIC [Suspect]
  4. TEKTURNA [Concomitant]
     Dosage: 150 MG, BID

REACTIONS (3)
  - Myocardial infarction [Unknown]
  - Dizziness [Unknown]
  - Syncope [Unknown]
